FAERS Safety Report 16578227 (Version 1)
Quarter: 2019Q3

REPORT INFORMATION
  Report Type: Spontaneous
  Country: CN (occurrence: CN)
  Receive Date: 20190716
  Receipt Date: 20190716
  Transmission Date: 20191004
  Serious: Yes (Hospitalization)
  Sender: FDA-Public Use
  Company Number: CN-BAYER-2019-128218

PATIENT
  Age: 63 Year
  Sex: Male
  Weight: 64 kg

DRUGS (1)
  1. NEXAVAR [Suspect]
     Active Substance: SORAFENIB
     Indication: DRUG THERAPY
     Dosage: 0.4 G, BID
     Route: 048
     Dates: start: 20190430, end: 20190616

REACTIONS (6)
  - Sensory disturbance [Unknown]
  - Skin ulcer [Unknown]
  - Skin exfoliation [Unknown]
  - Blister [Unknown]
  - Skin swelling [Not Recovered/Not Resolved]
  - Pain of skin [Unknown]

NARRATIVE: CASE EVENT DATE: 2019
